FAERS Safety Report 4979538-4 (Version None)
Quarter: 2006Q2

REPORT INFORMATION
  Report Type: 
  Country: None (occurrence: None)
  Receive Date: 20060421
  Receipt Date: 20060419
  Transmission Date: 20061013
  Serious: Yes (Other)
  Sender: FDA-Public Use
  Company Number: 2006AP01816

PATIENT
  Age: 59 Year
  Sex: Female
  Weight: 76 kg

DRUGS (3)
  1. DIPRIVAN [Suspect]
     Route: 065
  2. PETHIDINE HYDROCHLORIDE [Suspect]
  3. FENTANYL [Suspect]
     Indication: ANAESTHESIA

REACTIONS (7)
  - ANGIONEUROTIC OEDEMA [None]
  - BLOOD PRESSURE DECREASED [None]
  - DYSPHAGIA [None]
  - FLUSHING [None]
  - HYPERHIDROSIS [None]
  - PARAESTHESIA [None]
  - PARAESTHESIA ORAL [None]
